FAERS Safety Report 24553509 (Version 1)
Quarter: 2024Q4

REPORT INFORMATION
  Report Type: Spontaneous
  Country: US (occurrence: US)
  Receive Date: 20241028
  Receipt Date: 20241028
  Transmission Date: 20250115
  Serious: No
  Sender: ROCHE
  Company Number: US-ROCHE-3506304

PATIENT
  Sex: Female

DRUGS (2)
  1. NUTROPIN AQ [Suspect]
     Active Substance: SOMATROPIN
     Indication: Short stature
     Dosage: DAILY
     Route: 058
     Dates: start: 202205
  2. HUMATROPE [Concomitant]
     Active Substance: SOMATROPIN

REACTIONS (1)
  - Dysphonia [Unknown]
